FAERS Safety Report 9341979 (Version 1)
Quarter: 2013Q2

REPORT INFORMATION
  Report Type: Spontaneous
  Country: GB (occurrence: None)
  Receive Date: 20130606
  Receipt Date: 20130606
  Transmission Date: 20140414
  Serious: Yes (Hospitalization)
  Sender: FDA-Public Use
  Company Number: AUR-APL-2013-04488

PATIENT
  Sex: 0
  Weight: 98 kg

DRUGS (1)
  1. RISPERIDONE (RISPERIDONE) [Suspect]
     Indication: ANXIETY
     Dates: start: 201104, end: 201306

REACTIONS (6)
  - Thrombosis [None]
  - Psychotic disorder [None]
  - Memory impairment [None]
  - Confusional state [None]
  - Pain in extremity [None]
  - Chest pain [None]
